FAERS Safety Report 24561939 (Version 1)
Quarter: 2024Q4

REPORT INFORMATION
  Report Type: Spontaneous
  Country: US (occurrence: US)
  Receive Date: 20241029
  Receipt Date: 20241029
  Transmission Date: 20250114
  Serious: Yes (Hospitalization)
  Sender: RECKITT BENCKISER
  Company Number: US-INDIVIOR US-INDV-157002-2024

PATIENT
  Sex: Male
  Weight: 82.993 kg

DRUGS (35)
  1. SUBOXONE [Suspect]
     Active Substance: BUPRENORPHINE HYDROCHLORIDE\NALOXONE HYDROCHLORIDE
     Indication: Drug dependence
     Dosage: 4 MILLIGRAM, BID
     Route: 065
     Dates: start: 201002
  2. SUBOXONE [Suspect]
     Active Substance: BUPRENORPHINE HYDROCHLORIDE\NALOXONE HYDROCHLORIDE
     Dosage: 8 MILLIGRAM, BID
     Route: 065
     Dates: start: 201002
  3. SUBOXONE [Suspect]
     Active Substance: BUPRENORPHINE HYDROCHLORIDE\NALOXONE HYDROCHLORIDE
     Dosage: UNK (BITS)
     Route: 065
     Dates: start: 201009, end: 2010
  4. SUBOXONE [Suspect]
     Active Substance: BUPRENORPHINE HYDROCHLORIDE\NALOXONE HYDROCHLORIDE
     Indication: Drug dependence
     Dosage: 8 MILLIGRAM, BID
     Route: 065
     Dates: start: 201103, end: 2015
  5. PERCOCET [Suspect]
     Active Substance: ACETAMINOPHEN\OXYCODONE HYDROCHLORIDE
     Indication: Product used for unknown indication
     Dosage: UNK
     Route: 065
  6. PERCOCET [Suspect]
     Active Substance: ACETAMINOPHEN\OXYCODONE HYDROCHLORIDE
     Indication: Product used for unknown indication
     Dosage: UNK
     Route: 065
  7. AMBIEN CR [Concomitant]
     Active Substance: ZOLPIDEM TARTRATE
     Indication: Product used for unknown indication
     Dosage: 12.5 MILLIGRAM, UNKNOWN
     Route: 065
     Dates: start: 201002
  8. ACETAMINOPHEN\CHLORZOXAZONE [Concomitant]
     Active Substance: ACETAMINOPHEN\CHLORZOXAZONE
     Indication: Product used for unknown indication
     Dosage: 800 MILLIGRAM, UNKNOWN
     Route: 065
     Dates: start: 201002
  9. TAMSULOSIN HYDROCHLORIDE [Concomitant]
     Active Substance: TAMSULOSIN HYDROCHLORIDE
     Indication: Product used for unknown indication
     Dosage: 0.4 MILLIGRAM, UNKNOWN
     Route: 065
     Dates: start: 202003
  10. METHYLPREDNISOLONE [Concomitant]
     Active Substance: METHYLPREDNISOLONE
     Indication: Product used for unknown indication
     Dosage: 4 MILLIGRAM, UNKNOWN
     Route: 065
     Dates: start: 201003
  11. CLONAZEPAM [Concomitant]
     Active Substance: CLONAZEPAM
     Indication: Product used for unknown indication
     Dosage: 2 MILLIGRAM, UNKNOWN
     Route: 065
     Dates: start: 201003
  12. ABILIFY [Concomitant]
     Active Substance: ARIPIPRAZOLE
     Indication: Product used for unknown indication
     Dosage: 5 MILLIGRAM, UNKNOWN
     Route: 065
     Dates: start: 201003
  13. LYRICA [Concomitant]
     Active Substance: PREGABALIN
     Indication: Product used for unknown indication
     Dosage: 150 MILLIGRAM, UNKNOWN
     Route: 065
     Dates: start: 201004
  14. METAXALONE [Concomitant]
     Active Substance: METAXALONE
     Indication: Product used for unknown indication
     Dosage: 800 MILLIGRAM, UNKNOWN
     Route: 065
     Dates: start: 201004
  15. ACETAMINOPHEN [Concomitant]
     Active Substance: ACETAMINOPHEN
     Indication: Product used for unknown indication
     Dosage: UNK
     Route: 065
     Dates: start: 201005
  16. CLINDAMYCIN HYDROCHLORIDE [Concomitant]
     Active Substance: CLINDAMYCIN HYDROCHLORIDE
     Indication: Product used for unknown indication
     Dosage: 150 MILLIGRAM, UNKNOWN
     Route: 065
     Dates: start: 201005
  17. PREDNISONE [Concomitant]
     Active Substance: PREDNISONE
     Indication: Urticaria
     Dosage: 20 MILLIGRAM, UNKNOWN
     Route: 065
     Dates: start: 201007
  18. VIAGRA [Concomitant]
     Active Substance: SILDENAFIL CITRATE
     Indication: Product used for unknown indication
     Dosage: 100 MILLIGRAM, UNKNOWN
     Route: 065
     Dates: start: 201009
  19. OXYCODONE AND ACETAMINOPHEN [Concomitant]
     Active Substance: ACETAMINOPHEN\OXYCODONE HYDROCHLORIDE
     Indication: Product used for unknown indication
     Dosage: UNK
     Route: 065
     Dates: start: 201010
  20. ZOLPIDEM [Concomitant]
     Active Substance: ZOLPIDEM TARTRATE
     Indication: Product used for unknown indication
     Dosage: 12.5 MILLIGRAM, UNKNOWN
     Route: 065
     Dates: start: 201012
  21. OXYCODONE HYDROCHLORIDE [Concomitant]
     Active Substance: OXYCODONE HYDROCHLORIDE
     Indication: Product used for unknown indication
     Dosage: 5 MILLIGRAM, UNKNOWN
     Route: 065
     Dates: start: 201102
  22. AMOXICILLIN\CLAVULANIC ACID [Concomitant]
     Active Substance: AMOXICILLIN\CLAVULANIC ACID
     Indication: Product used for unknown indication
     Dosage: UNK
     Route: 065
     Dates: start: 201103
  23. VENLAFAXINE HCL [Concomitant]
     Active Substance: VENLAFAXINE HYDROCHLORIDE
     Indication: Product used for unknown indication
     Dosage: 75 MILLIGRAM, UNKNOWN
     Route: 065
     Dates: start: 201104
  24. GABAPENTIN [Concomitant]
     Active Substance: GABAPENTIN
     Indication: Product used for unknown indication
     Dosage: 100 MILLIGRAM, UNKNOWN
     Route: 065
     Dates: start: 201106
  25. ZOLPIDEM TARTRATE [Concomitant]
     Active Substance: ZOLPIDEM TARTRATE
     Indication: Product used for unknown indication
     Dosage: 12.5 MILLIGRAM, UNKNOWN
     Route: 065
     Dates: start: 201106
  26. NAPROXEN [Concomitant]
     Active Substance: NAPROXEN
     Indication: Product used for unknown indication
     Dosage: 375 MILLIGRAM, UNKNOWN
     Route: 065
     Dates: start: 201107
  27. TESTIM [Concomitant]
     Active Substance: TESTOSTERONE
     Indication: Product used for unknown indication
     Dosage: UNK
     Route: 065
     Dates: start: 201110
  28. FINASTERIDE [Concomitant]
     Active Substance: FINASTERIDE
     Indication: Product used for unknown indication
     Dosage: 5 MILLIGRAM, UNKNOWN
     Route: 065
     Dates: start: 201204
  29. OLANZAPINE [Concomitant]
     Active Substance: OLANZAPINE
     Indication: Product used for unknown indication
     Dosage: 5 MILLIGRAM, UNKNOWN
     Route: 065
     Dates: start: 201211
  30. KETOROLAC [Concomitant]
     Active Substance: KETOROLAC TROMETHAMINE
     Indication: Product used for unknown indication
     Dosage: 10 MILLIGRAM, UNKNOWN
     Route: 065
     Dates: start: 201211
  31. FLUCONAZOLE [Concomitant]
     Active Substance: FLUCONAZOLE
     Indication: Product used for unknown indication
     Dosage: UNK
     Route: 065
     Dates: start: 201310
  32. AXIRON [Concomitant]
     Active Substance: TESTOSTERONE
     Indication: Product used for unknown indication
     Dosage: UNK
     Route: 065
     Dates: start: 201408
  33. OXYCONTIN [Concomitant]
     Active Substance: OXYCODONE HYDROCHLORIDE
     Indication: Pain
     Dosage: UNK
     Route: 065
     Dates: start: 2011
  34. AUGMENTIN [Concomitant]
     Active Substance: AMOXICILLIN\CLAVULANATE POTASSIUM
     Indication: Product used for unknown indication
     Dosage: UNK
     Route: 065
     Dates: start: 201002
  35. KLONOPIN [Concomitant]
     Active Substance: CLONAZEPAM
     Indication: Product used for unknown indication
     Dosage: UNK, TID
     Route: 065

REACTIONS (29)
  - Peroneal nerve palsy [Unknown]
  - Benign prostatic hyperplasia [Unknown]
  - Lower urinary tract symptoms [Unknown]
  - Burns second degree [Unknown]
  - Arthropod bite [Unknown]
  - Allergy to arthropod sting [Unknown]
  - Pollakiuria [Unknown]
  - Bursitis [Unknown]
  - Arthropathy [Unknown]
  - Dental caries [Unknown]
  - Tooth erosion [Unknown]
  - Eye irritation [Unknown]
  - Insomnia [Unknown]
  - Generalised anxiety disorder [Unknown]
  - Intentional underdose [Recovered/Resolved]
  - Dyspepsia [Unknown]
  - Inappropriate schedule of product administration [Recovered/Resolved]
  - Hypersensitivity [Unknown]
  - Peripheral swelling [Unknown]
  - Wrong technique in product usage process [Recovered/Resolved]
  - Arthralgia [Unknown]
  - Pharyngitis [Unknown]
  - Wheezing [Unknown]
  - Diarrhoea [Unknown]
  - Rash [Unknown]
  - Libido decreased [Unknown]
  - Oedema peripheral [Unknown]
  - Upper respiratory tract infection [Unknown]
  - Drug abuse [Unknown]

NARRATIVE: CASE EVENT DATE: 20100101
